FAERS Safety Report 7637623-2 (Version None)
Quarter: 2011Q3

REPORT INFORMATION
  Report Type: 
  Country: None (occurrence: None)
  Receive Date: 20110726
  Receipt Date: 20110718
  Transmission Date: 20111222
  Serious: Yes (Other)
  Sender: FDA-Public Use
  Company Number: PHHY2011GB64079

PATIENT
  Age: 49 Year
  Sex: Male
  Weight: 81 kg

DRUGS (7)
  1. SIMVASTATIN [Suspect]
  2. DIPYRIDAMOLE [Concomitant]
     Dosage: UNK
     Dates: start: 20110407, end: 20110606
  3. TRAMADOL HCL [Concomitant]
     Dosage: UNK
     Dates: start: 20110517, end: 20110614
  4. RAMIPRIL [Concomitant]
     Dosage: UNK
     Dates: start: 20110407, end: 20110602
  5. SIMVASTATIN [Concomitant]
     Dosage: UNK
     Dates: start: 20110407, end: 20110602
  6. ASPIRIN [Concomitant]
     Dosage: UNK
     Dates: start: 20110407, end: 20110417
  7. CO-DYDRAMOL [Concomitant]
     Dosage: UNK
     Dates: start: 20110407, end: 20110419

REACTIONS (4)
  - PAIN IN EXTREMITY [None]
  - BLOOD CREATINE PHOSPHOKINASE INCREASED [None]
  - MYALGIA [None]
  - MYOSITIS [None]
